FAERS Safety Report 13994266 (Version 1)
Quarter: 2017Q3

REPORT INFORMATION
  Report Type: Spontaneous
  Country: US (occurrence: US)
  Receive Date: 20170920
  Receipt Date: 20170920
  Transmission Date: 20171128
  Serious: No
  Sender: FDA-Public Use
  Company Number: US-009507513-1709USA009340

PATIENT

DRUGS (1)
  1. EMEND [Suspect]
     Active Substance: APREPITANT

REACTIONS (1)
  - Skin injury [Unknown]
